FAERS Safety Report 7623940-9 (Version None)
Quarter: 2011Q3

REPORT INFORMATION
  Report Type: 
  Country: None (occurrence: None)
  Receive Date: 20110720
  Receipt Date: 20110713
  Transmission Date: 20111222
  Serious: Yes (Hospitalization, Other)
  Sender: FDA-Public Use
  Company Number: JP-PFIZER INC-2010147510

PATIENT
  Age: 77 Year
  Sex: Female
  Weight: 40 kg

DRUGS (9)
  1. AZULFIDINE [Suspect]
     Indication: RHEUMATOID ARTHRITIS
     Dosage: 500 MG, 1X/DAY
     Route: 048
     Dates: start: 20100818, end: 20100925
  2. PREDNISOLONE [Concomitant]
     Dosage: 10 MG, 1X/DAY
     Route: 048
     Dates: start: 20100916, end: 20100927
  3. RISEDRONATE SODIUM HYDRATE [Concomitant]
     Indication: OSTEOPOROSIS
     Dosage: 17.5 MG, WEEKLY
     Route: 048
  4. CELECOXIB [Concomitant]
     Dosage: UNK
     Route: 048
  5. CELECOXIB [Concomitant]
     Dosage: 100 MG, A DAY
     Route: 048
  6. PREDNISOLONE [Concomitant]
     Dosage: 5 MG, A DAY
     Route: 048
  7. PREDNISOLONE [Concomitant]
     Dosage: 2.5 MG, 1X/DAY
     Route: 048
     Dates: start: 20100927
  8. MUCOSTA [Concomitant]
     Indication: GASTRITIS
     Dosage: 100 MG, 1X/DAY
     Route: 048
  9. PREDNISOLONE [Concomitant]
     Indication: RHEUMATOID ARTHRITIS
     Dosage: 2.5 MG, 1X/DAY
     Route: 048
     Dates: end: 20100915

REACTIONS (5)
  - ANAL ULCER [None]
  - AGRANULOCYTOSIS [None]
  - MOUTH ULCERATION [None]
  - ARTHRALGIA [None]
  - RHEUMATOID ARTHRITIS [None]
